FAERS Safety Report 20741312 (Version 1)
Quarter: 2022Q2

REPORT INFORMATION
  Report Type: Spontaneous
  Country: US (occurrence: US)
  Receive Date: 20220422
  Receipt Date: 20220422
  Transmission Date: 20220720
  Serious: No
  Sender: FDA-Public Use
  Company Number: US-PFIZER INC-202101104600

PATIENT
  Age: 51 Year
  Sex: Female
  Weight: 50.8 kg

DRUGS (1)
  1. CHANTIX [Suspect]
     Active Substance: VARENICLINE TARTRATE
     Indication: Smoking cessation therapy
     Dosage: 1 MG, 2X/DAY
     Dates: start: 2006, end: 20210724

REACTIONS (5)
  - Thinking abnormal [Not Recovered/Not Resolved]
  - Vision blurred [Recovering/Resolving]
  - Psychotic disorder [Unknown]
  - Oedema [Recovered/Resolved]
  - Balance disorder [Recovering/Resolving]

NARRATIVE: CASE EVENT DATE: 20200101
